FAERS Safety Report 19475827 (Version 1)
Quarter: 2021Q2

REPORT INFORMATION
  Report Type: Spontaneous
  Country: EG (occurrence: EG)
  Receive Date: 20210630
  Receipt Date: 20210630
  Transmission Date: 20210717
  Serious: Yes (Hospitalization, Other)
  Sender: FDA-Public Use
  Company Number: EG-SUN PHARMACEUTICAL INDUSTRIES LTD-2021RR-302411

PATIENT
  Age: 20 Year
  Sex: Male

DRUGS (2)
  1. IBUPROFEN. [Suspect]
     Active Substance: IBUPROFEN
     Indication: CHRONIC GRANULOMATOUS DISEASE
     Dosage: 400 MILLIGRAM, TID
     Route: 065
  2. AMOXICILLIN/CLAVULANIC ACID [Suspect]
     Active Substance: AMOXICILLIN\CLAVULANIC ACID
     Indication: CHRONIC GRANULOMATOUS DISEASE
     Dosage: 1 GM BID
     Route: 065

REACTIONS (1)
  - Condition aggravated [Recovering/Resolving]
